FAERS Safety Report 24994350 (Version 1)
Quarter: 2025Q1

REPORT INFORMATION
  Report Type: Spontaneous
  Country: JP (occurrence: JP)
  Receive Date: 20250221
  Receipt Date: 20250221
  Transmission Date: 20250408
  Serious: Yes (Death, Hospitalization)
  Sender: ROCHE
  Company Number: JP-CHUGAI-2024031079

PATIENT
  Age: 79 Year
  Sex: Male
  Weight: 57.1 kg

DRUGS (9)
  1. TECENTRIQ [Suspect]
     Active Substance: ATEZOLIZUMAB
     Indication: Hepatocellular carcinoma
     Dosage: UNK
     Route: 040
     Dates: start: 20240717, end: 20240717
  2. AVASTIN [Suspect]
     Active Substance: BEVACIZUMAB
     Indication: Hepatocellular carcinoma
     Dosage: UNK
     Route: 040
     Dates: start: 20240717, end: 20240717
  3. LANSOPRAZOLE [Concomitant]
     Active Substance: LANSOPRAZOLE
     Route: 065
  4. FUROSEMIDE [Concomitant]
     Active Substance: FUROSEMIDE
     Route: 065
  5. OLMESARTAN MEDOXOMIL [Concomitant]
     Active Substance: OLMESARTAN MEDOXOMIL
     Route: 065
  6. MAGNESIUM OXIDE [Concomitant]
     Active Substance: MAGNESIUM OXIDE
     Route: 065
     Dates: start: 20231219, end: 20240828
  7. URSO [Concomitant]
     Active Substance: URSODIOL
     Dates: start: 20190411
  8. DULOXETINE HYDROCHLORIDE [Concomitant]
     Active Substance: DULOXETINE HYDROCHLORIDE
     Dates: start: 20230330
  9. FEBUXOSTAT [Concomitant]
     Active Substance: FEBUXOSTAT
     Route: 065
     Dates: start: 20220821

REACTIONS (3)
  - Condition aggravated [Fatal]
  - Herpes zoster [Recovering/Resolving]
  - Herpes zoster meningitis [Recovered/Resolved]

NARRATIVE: CASE EVENT DATE: 20240821
